FAERS Safety Report 6212279-4 (Version None)
Quarter: 2009Q2

REPORT INFORMATION
  Report Type: 
  Country: None (occurrence: None)
  Receive Date: 20090529
  Receipt Date: 20090521
  Transmission Date: 20091009
  Serious: Yes (Hospitalization, Other)
  Sender: FDA-Public Use
  Company Number: CHPA2008US20540

PATIENT
  Age: 57 Year
  Sex: Male
  Weight: 98.9 kg

DRUGS (1)
  1. MAALOX MS TOTAL STOMACH RELIEF  (BISMUTH SUBSALICYLATE) [Suspect]
     Indication: ABDOMINAL DISCOMFORT
     Dosage: WHOLE BOTTLE, IN 2 HOURS, ORAL
     Route: 048
     Dates: start: 20081101, end: 20081101

REACTIONS (8)
  - AMNESIA [None]
  - BLOOD PRESSURE ABNORMAL [None]
  - DEPRESSION [None]
  - HALLUCINATION [None]
  - HEART RATE ABNORMAL [None]
  - HYPERHIDROSIS [None]
  - OVERDOSE [None]
  - WEIGHT DECREASED [None]
